FAERS Safety Report 8455335-2 (Version None)
Quarter: 2012Q2

REPORT INFORMATION
  Report Type: 
  Country: None (occurrence: None)
  Receive Date: 20120621
  Receipt Date: 20120613
  Transmission Date: 20120825
  Serious: Yes (Hospitalization)
  Sender: FDA-Public Use
  Company Number: JP-JNJFOC-20120511430

PATIENT
  Age: 65 Year
  Sex: Female

DRUGS (2)
  1. TRAMADOL HCL [Suspect]
     Indication: PAIN
     Dosage: 4 PER 1 DAY
     Route: 048
     Dates: start: 20120401
  2. TRAMADOL HCL [Suspect]
     Route: 048

REACTIONS (3)
  - OSTEOARTHRITIS [None]
  - DIZZINESS [None]
  - NAUSEA [None]
